FAERS Safety Report 9501712 (Version 1)
Quarter: 2013Q1

REPORT INFORMATION
  Report Type: Spontaneous
  Country: US (occurrence: None)
  Receive Date: 20130107
  Receipt Date: 20130107
  Transmission Date: 20140127
  Serious: No
  Sender: FDA-Public Use
  Company Number: PHEH2012US020062

PATIENT
  Age: 37 Year
  Sex: Female
  Weight: 81.6 kg

DRUGS (1)
  1. GILENYA [Suspect]
     Indication: MULTIPLE SCLEROSIS
     Dosage: 0.5 MG, QD, ORAL
     Route: 048
     Dates: start: 20121007

REACTIONS (4)
  - Rash [None]
  - Fatigue [None]
  - Hypoaesthesia [None]
  - Headache [None]
